FAERS Safety Report 4370500-1 (Version None)
Quarter: 2004Q2

REPORT INFORMATION
  Report Type: 
  Country: None (occurrence: None)
  Receive Date: 20040527
  Receipt Date: 20040518
  Transmission Date: 20050107
  Serious: Yes (Life-Threatening, Hospitalization)
  Sender: FDA-Public Use
  Company Number: ZONI001426

PATIENT
  Age: 66 Year
  Sex: Male

DRUGS (1)
  1. ZONISAMIDE (ZONISAMIDE) [Suspect]
     Indication: EPILEPSY

REACTIONS (5)
  - B-LYMPHOCYTE COUNT DECREASED [None]
  - BLOOD IMMUNOGLOBULIN G DECREASED [None]
  - BLOOD IMMUNOGLOBULIN M DECREASED [None]
  - DRUG HYPERSENSITIVITY [None]
  - WHITE BLOOD CELL COUNT INCREASED [None]
